FAERS Safety Report 17212494 (Version 2)
Quarter: 2020Q1

REPORT INFORMATION
  Report Type: Spontaneous
  Country: FR (occurrence: FR)
  Receive Date: 20191230
  Receipt Date: 20200114
  Transmission Date: 20200409
  Serious: Yes (Other)
  Sender: FDA-Public Use
  Company Number: FR-TEVA-2019-FR-1160030

PATIENT
  Age: 82 Year
  Sex: Female
  Weight: 54.5 kg

DRUGS (9)
  1. METHYLPREDNISOLONE. [Suspect]
     Active Substance: METHYLPREDNISOLONE
     Indication: PREMEDICATION
     Dosage: 100 MG
     Route: 042
     Dates: start: 20191018, end: 20191019
  2. LORMETAZEPAM [Concomitant]
     Active Substance: LORMETAZEPAM
  3. CETIRIZINE (DICHLORHYDRATE DE) [Suspect]
     Active Substance: CETIRIZINE HYDROCHLORIDE
     Indication: PREMEDICATION
     Dosage: 10 MG
     Route: 048
     Dates: start: 20191018, end: 20191018
  4. SPIRONOLACTONE. [Concomitant]
     Active Substance: SPIRONOLACTONE
  5. ONDANSETRON [Suspect]
     Active Substance: ONDANSETRON
     Indication: PREMEDICATION
     Dosage: 8 MG
     Route: 048
     Dates: start: 20191018, end: 20191018
  6. ATORVASTATINE [Concomitant]
     Active Substance: ATORVASTATIN
  7. BENDAMUSTINE ACCORD [Suspect]
     Active Substance: BENDAMUSTINE
     Indication: B-CELL LYMPHOMA
     Dosage: 110 MG
     Route: 042
     Dates: start: 20191018, end: 20191018
  8. MABTHERA [Suspect]
     Active Substance: RITUXIMAB
     Indication: B-CELL LYMPHOMA
     Dosage: 590  MG
     Route: 042
     Dates: start: 20191018, end: 20191018
  9. ATENOLOL. [Concomitant]
     Active Substance: ATENOLOL

REACTIONS (1)
  - Seborrhoeic dermatitis [Recovered/Resolved]

NARRATIVE: CASE EVENT DATE: 20191019
